FAERS Safety Report 4935979-2 (Version None)
Quarter: 2006Q1

REPORT INFORMATION
  Report Type: 
  Country: None (occurrence: None)
  Receive Date: 20060307
  Receipt Date: 20050812
  Transmission Date: 20060701
  Serious: Yes (Disabling, Other)
  Sender: FDA-Public Use
  Company Number: US-GLAXOSMITHKLINE-A0570069A

PATIENT
  Age: 74 Year
  Sex: Female
  Weight: 73.6 kg

DRUGS (7)
  1. REQUIP [Suspect]
     Indication: RESTLESS LEGS SYNDROME
     Dosage: 1MG PER DAY
     Route: 048
     Dates: start: 20050727, end: 20050803
  2. PREMARIN [Concomitant]
     Dosage: .625U PER DAY
     Route: 048
  3. LASIX [Concomitant]
     Dosage: 20MG PER DAY
     Route: 048
  4. K-DUR 10 [Concomitant]
     Dosage: 20MG PER DAY
     Route: 048
  5. ATENOLOL [Concomitant]
     Dosage: 50MG PER DAY
     Route: 048
  6. SYNTHROID [Concomitant]
     Dosage: 88MCG PER DAY
     Route: 048
  7. ASPIRIN [Concomitant]
     Route: 048

REACTIONS (1)
  - SYNCOPE [None]
